FAERS Safety Report 5297983-7 (Version None)
Quarter: 2007Q2

REPORT INFORMATION
  Report Type: 
  Country: None (occurrence: None)
  Receive Date: 20070416
  Receipt Date: 20070405
  Transmission Date: 20071010
  Serious: Yes (Hospitalization)
  Sender: FDA-Public Use
  Company Number: NZ-ROCHE-492207

PATIENT

DRUGS (1)
  1. XELODA [Suspect]
     Dosage: ADJUVANT TREATMENT.
     Route: 065

REACTIONS (1)
  - PORTAL VEIN THROMBOSIS [None]
